FAERS Safety Report 5220827-6 (Version None)
Quarter: 2007Q1

REPORT INFORMATION
  Report Type: 
  Country: None (occurrence: None)
  Receive Date: 20070126
  Receipt Date: 20070118
  Transmission Date: 20070707
  Serious: Yes (Other)
  Sender: FDA-Public Use
  Company Number: DE-AMGEN-UK207570

PATIENT
  Age: 80 Year
  Sex: Male

DRUGS (2)
  1. ARANESP [Suspect]
     Indication: DIALYSIS
     Route: 065
  2. IRON [Concomitant]
     Route: 042

REACTIONS (2)
  - HAEMOGLOBIN DECREASED [None]
  - TRANSFERRIN DECREASED [None]
